FAERS Safety Report 15315007 (Version 1)
Quarter: 2018Q3

REPORT INFORMATION
  Report Type: Spontaneous
  Country: US (occurrence: US)
  Receive Date: 20180824
  Receipt Date: 20180824
  Transmission Date: 20181010
  Serious: Yes (Other)
  Sender: FDA-Public Use
  Company Number: US-ASTRAZENECA-2018SF05373

PATIENT
  Age: 916 Month
  Sex: Male
  Weight: 72.1 kg

DRUGS (5)
  1. QUETIAPINE. [Suspect]
     Active Substance: QUETIAPINE
     Indication: AGGRESSION
     Route: 048
     Dates: start: 20180815
  2. METOPROLOL. [Suspect]
     Active Substance: METOPROLOL
     Dosage: UNSPECIFIED 25 MG TWO TIMES A DAY BUT DID NOT TAKE THIS EVERYDAY.
     Route: 048
     Dates: start: 201807
  3. ARICEPT [Concomitant]
     Active Substance: DONEPEZIL HYDROCHLORIDE
     Indication: AMNESIA
     Route: 048
     Dates: start: 2015
  4. LOSARTAN. [Concomitant]
     Active Substance: LOSARTAN
     Indication: BLOOD PRESSURE ABNORMAL
     Route: 048
  5. QUETIAPINE. [Suspect]
     Active Substance: QUETIAPINE
     Indication: AGGRESSION
     Route: 048
     Dates: start: 20180723, end: 20180814

REACTIONS (6)
  - Anger [Recovered/Resolved]
  - Homicidal ideation [Recovered/Resolved]
  - Aggression [Recovered/Resolved]
  - Mental disorder [Recovered/Resolved]
  - Off label use [Unknown]
  - Product use in unapproved indication [Unknown]

NARRATIVE: CASE EVENT DATE: 201807
